FAERS Safety Report 8463645 (Version 8)
Quarter: 2012Q4

REPORT INFORMATION
  Report Type: 
  Country: US (occurrence: US)
  Receive Date: 20120316
  Receipt Date: 20120913
  Transmission Date: 20130627
  Serious: Yes (Other)
  Sender: FDA-Public Use
  Company Number: US-PFIZER INC-2012066696

PATIENT
  Age: 68 Year
  Sex: Female
  Weight: 52.15 kg

DRUGS (2)
  1. LYRICA [Suspect]
     Indication: NEUROPATHY PERIPHERAL
     Dosage: 75 mg, 2x/day
     Dates: start: 2007, end: 201203
  2. PREVACID [Concomitant]
     Indication: DYSPEPSIA
     Dosage: UNK

REACTIONS (8)
  - Hip fracture [Unknown]
  - Fall [Unknown]
  - Clavicle fracture [Unknown]
  - Rotator cuff syndrome [Unknown]
  - Neuropathy peripheral [Not Recovered/Not Resolved]
  - Insomnia [Not Recovered/Not Resolved]
  - Ear pain [Unknown]
  - Pain in extremity [Unknown]
